FAERS Safety Report 10200955 (Version 5)
Quarter: 2016Q2

REPORT INFORMATION
  Report Type: Report from Study
  Country: CN (occurrence: CN)
  Receive Date: 20140528
  Receipt Date: 20160628
  Transmission Date: 20160815
  Serious: Yes (Hospitalization)
  Sender: FDA-Public Use
  Company Number: CN-ROCHE-1408339

PATIENT
  Age: 77 Year
  Sex: Male
  Weight: 83 kg

DRUGS (23)
  1. DOXORUBICIN [Suspect]
     Active Substance: DOXORUBICIN
     Indication: DIFFUSE LARGE B-CELL LYMPHOMA
     Dosage: DATE OF LAST DOSE (100 MG) PRIOR TO AE ONSET : 13/MAY/2014.
     Route: 042
     Dates: start: 20140124
  2. TROPISETRON HYDROCHLORIDE [Concomitant]
     Active Substance: TROPISETRON HYDROCHLORIDE
     Indication: PROPHYLAXIS
     Route: 065
     Dates: start: 20140124, end: 20140513
  3. AMINO ACIDS [Concomitant]
     Active Substance: AMINO ACIDS
     Dosage: INDICATION: NUTRITION
     Route: 065
     Dates: start: 20140524, end: 20140529
  4. PUERARIN [Concomitant]
     Dosage: INDICATION: PLATELET COUNT DECREASED
     Route: 065
     Dates: start: 20140524, end: 20140526
  5. CYCLOPHOSPHAMIDE. [Suspect]
     Active Substance: CYCLOPHOSPHAMIDE
     Indication: DIFFUSE LARGE B-CELL LYMPHOMA
     Dosage: DATE OF LAST DOSE (1500 MG) PRIOR TO AE ONSET : 13/MAY/2014.
     Route: 042
     Dates: start: 20140124
  6. OMEPRAZOLE. [Concomitant]
     Active Substance: OMEPRAZOLE
     Indication: PROPHYLAXIS
     Route: 065
     Dates: start: 20140123, end: 20140703
  7. ZOLEDRONIC ACID [Concomitant]
     Active Substance: ZOLEDRONIC ACID
     Indication: PROPHYLAXIS
     Route: 065
     Dates: start: 20140513, end: 20140513
  8. LACTULOSE. [Concomitant]
     Active Substance: LACTULOSE
     Indication: PROPHYLAXIS
     Route: 048
     Dates: start: 20140525, end: 20140525
  9. DIPHENHYDRAMINE. [Concomitant]
     Active Substance: DIPHENHYDRAMINE
     Indication: PROPHYLAXIS
     Route: 065
     Dates: start: 20140123, end: 20140703
  10. DIFLUCAN [Concomitant]
     Active Substance: FLUCONAZOLE
     Indication: PROPHYLAXIS
     Dosage: INDICATION: PREVENT RESPIRATORY TRACT INFECTION
     Route: 065
     Dates: start: 20140525, end: 20140529
  11. OBINUTUZUMAB [Suspect]
     Active Substance: OBINUTUZUMAB
     Indication: DIFFUSE LARGE B-CELL LYMPHOMA
     Dosage: DATE OF MOST RECENT DOSE (VOLUME : 250 ML AND DOSE CONCENTRATION : 4 MG/ML) PRIOR TO AE ONSET : 13/M
     Route: 042
     Dates: start: 20140123
  12. MEGESTROL ACETATE. [Concomitant]
     Active Substance: MEGESTROL ACETATE
     Indication: PROPHYLAXIS
     Dosage: INDICATION: PREVENT ECOG DECREASED
     Route: 065
     Dates: start: 20140524, end: 20140529
  13. IMIPENEM [Concomitant]
     Active Substance: IMIPENEM
     Indication: PROPHYLAXIS
     Dosage: INDICATION: PREVENT RESPIRATORY TRACT INFECTION
     Route: 065
     Dates: start: 20140524, end: 20140529
  14. PREDNISOLONE. [Suspect]
     Active Substance: PREDNISOLONE
     Indication: DIFFUSE LARGE B-CELL LYMPHOMA
     Dosage: DATE OF LAST DOSE (100 MG) PRIOR TO AE ONSET : 17/MAY/2014.
     Route: 048
     Dates: start: 20140124
  15. DEXRAZOXANE. [Concomitant]
     Active Substance: DEXRAZOXANE
     Indication: PROPHYLAXIS
     Route: 065
     Dates: start: 20140124, end: 20140513
  16. VANCOMYCIN [Concomitant]
     Active Substance: VANCOMYCIN
     Indication: PROPHYLAXIS
     Dosage: INDICATION: PREVENT RESPIRATORY TRACT INFECTION
     Route: 065
     Dates: start: 20140524, end: 20140529
  17. VINCRISTINE [Suspect]
     Active Substance: VINCRISTINE
     Indication: DIFFUSE LARGE B-CELL LYMPHOMA
     Dosage: DATE OF LAST DOSE (1.5 MG) PRIOR TO AE ONSET 13/MAY/2014.
     Route: 040
     Dates: start: 20140124
  18. FAT EMULSION NOS [Concomitant]
     Active Substance: EGG PHOSPHOLIPIDS\SAFFLOWER OIL\SOYBEAN OIL
     Dosage: INDICATION: NUTRITION
     Route: 065
     Dates: start: 20140524, end: 20140529
  19. GLUCOSE [Concomitant]
     Active Substance: DEXTROSE
     Dosage: INDICATION: NUTRITION
     Route: 065
     Dates: start: 20140524, end: 20140529
  20. INSULIN [Concomitant]
     Active Substance: INSULIN NOS
     Dosage: INDICATION: NUTRITION
     Route: 065
     Dates: start: 20140524, end: 20140529
  21. NEXIUM [Concomitant]
     Active Substance: ESOMEPRAZOLE MAGNESIUM
     Indication: PROPHYLAXIS
     Route: 065
     Dates: start: 20140124, end: 20140513
  22. CAFFEINE/PARACETAMOL [Concomitant]
     Indication: PROPHYLAXIS
     Route: 065
     Dates: start: 20140123, end: 20140703
  23. HUMAN ALBUMIN [Concomitant]
     Active Substance: ALBUMIN HUMAN
     Dosage: INDICATION: ALBUMIN DECLINE
     Route: 065
     Dates: start: 20140525, end: 20140529

REACTIONS (2)
  - Leukopenia [Recovered/Resolved]
  - Febrile neutropenia [Recovered/Resolved]

NARRATIVE: CASE EVENT DATE: 20140522
